FAERS Safety Report 18104062 (Version 1)
Quarter: 2020Q3

REPORT INFORMATION
  Report Type: Spontaneous
  Country: US (occurrence: US)
  Receive Date: 20200731
  Receipt Date: 20200731
  Transmission Date: 20201103
  Serious: No
  Sender: FDA-Public Use
  Company Number: None

PATIENT
  Age: 65 Year
  Sex: Female

DRUGS (1)
  1. SOFOSBUVIR AND VELPATASVIR [Suspect]
     Active Substance: SOFOSBUVIR\VELPATASVIR
     Dosage: ?          OTHER DOSE:400/100MG;?
     Route: 048
     Dates: start: 202007

REACTIONS (5)
  - Haemorrhoids [None]
  - Increased tendency to bruise [None]
  - Acute hepatitis B [None]
  - Swelling [None]
  - Musculoskeletal disorder [None]

NARRATIVE: CASE EVENT DATE: 20200731
